FAERS Safety Report 7996711-1 (Version None)
Quarter: 2011Q4

REPORT INFORMATION
  Report Type: 
  Country: None (occurrence: None)
  Receive Date: 20111221
  Receipt Date: 20111219
  Transmission Date: 20120403
  Serious: Yes (Hospitalization)
  Sender: FDA-Public Use
  Company Number: ES-AMGEN-ESPSP2011067357

PATIENT
  Sex: Male

DRUGS (1)
  1. VECTIBIX [Suspect]
     Indication: COLON CANCER
     Dosage: 150 MG, Q2WK
     Route: 042
     Dates: start: 20110712, end: 20110823

REACTIONS (1)
  - TOXIC EPIDERMAL NECROLYSIS [None]
